FAERS Safety Report 18393440 (Version 4)
Quarter: 2021Q2

REPORT INFORMATION
  Report Type: Other
  Country: CA (occurrence: CA)
  Receive Date: 20201016
  Receipt Date: 20210518
  Transmission Date: 20210717
  Serious: No
  Sender: FDA-Public Use
  Company Number: CA-ROCHE-2418333

PATIENT
  Age: 42 Year
  Sex: Male

DRUGS (7)
  1. MARIJUANA [Concomitant]
     Active Substance: CANNABIS SATIVA SUBSP. INDICA TOP
  2. OCREVUS [Suspect]
     Active Substance: OCRELIZUMAB
     Indication: RELAPSING-REMITTING MULTIPLE SCLEROSIS
     Dosage: CONCENTRATE FOR INTRAVENOUS INFUSION, 300 MG AT DAY 0 AND 14, THEN 600 MG EVERY 6 MONTH
     Route: 042
     Dates: start: 20190911
  3. AMANTADINE. [Concomitant]
     Active Substance: AMANTADINE HYDROCHLORIDE
  4. GABAPENTIN. [Concomitant]
     Active Substance: GABAPENTIN
  5. OCREVUS [Suspect]
     Active Substance: OCRELIZUMAB
     Dosage: CONCENTRATE FOR INTRAVENOUS INFUSION, 600 MG EVERY 6 MONTH ;ONGOING: YES
     Route: 042
  6. LOSEC [Concomitant]
     Active Substance: OMEPRAZOLE
  7. BACLOFEN. [Concomitant]
     Active Substance: BACLOFEN

REACTIONS (14)
  - Sinus congestion [Not Recovered/Not Resolved]
  - Nasal congestion [Not Recovered/Not Resolved]
  - Headache [Recovering/Resolving]
  - Therapeutic response shortened [Unknown]
  - Pain [Recovering/Resolving]
  - Discomfort [Recovering/Resolving]
  - Fatigue [Recovering/Resolving]
  - Rhinorrhoea [Not Recovered/Not Resolved]
  - Sinus disorder [Not Recovered/Not Resolved]
  - Abdominal discomfort [Unknown]
  - Sinusitis [Recovering/Resolving]
  - Influenza [Not Recovered/Not Resolved]
  - Lower respiratory tract infection [Recovering/Resolving]
  - Cough [Not Recovered/Not Resolved]

NARRATIVE: CASE EVENT DATE: 20201011
